FAERS Safety Report 9164381 (Version 1)
Quarter: 2013Q1

REPORT INFORMATION
  Report Type: Spontaneous
  Country: GB (occurrence: None)
  Receive Date: 20130226
  Receipt Date: 20130226
  Transmission Date: 20140127
  Serious: Yes (Hospitalization)
  Sender: FDA-Public Use
  Company Number: 2013062315

PATIENT
  Age: 72 Year
  Sex: Male
  Weight: 92 kg

DRUGS (9)
  1. DALTEPARIN SODIUM (DALTEPARIN SODIUM) UNKNOWN [Suspect]
  2. ASPIRIN (ACETYLSALICYLIC ACID) [Suspect]
     Indication: PROPHYLAXIS
  3. CANDESARTAN CILEXETIL (CANDESARTAN CILEXETIL) [Concomitant]
  4. SIMVASTATIN (SIMVASTATIN) [Concomitant]
  5. MONTELUKAST [Concomitant]
  6. ADCAL-D3 (CALCIUM CARBONATE, COLECALCIFEROL) [Concomitant]
  7. SALBUTAMOL (SALBUTAMOL) [Concomitant]
  8. SERETIDE (FLUTICASONE PROPIONATE, SALMETEROL XINAFOATE) [Concomitant]
  9. CO-CODAMOL (CODEINE PHOSPHATE, PARACETAMOL) [Concomitant]

REACTIONS (3)
  - Gastric haemorrhage [None]
  - Peptic ulcer perforation [None]
  - Knee arthroplasty [None]
